FAERS Safety Report 6771336-4 (Version None)
Quarter: 2010Q2

REPORT INFORMATION
  Report Type: 
  Country: None (occurrence: None)
  Receive Date: 20100616
  Receipt Date: 20100607
  Transmission Date: 20101027
  Serious: Yes (Hospitalization)
  Sender: FDA-Public Use
  Company Number: JP-ASTRAZENECA-2010SE27516

PATIENT
  Age: 8817 Day
  Sex: Female

DRUGS (17)
  1. BRICANYL [Suspect]
     Indication: ASTHMA
     Route: 055
     Dates: start: 20090812
  2. SYMBICORT [Suspect]
     Indication: ASTHMA
     Dosage: 160/4.5 ?G ONE INHALATION TWO TIMES A DAY
     Route: 055
     Dates: start: 20090812
  3. LOCOID [Concomitant]
     Indication: ECZEMA
     Dosage: DOSE UNKNOWN, AS REQUIRED
     Route: 003
     Dates: start: 20090522
  4. KETOPROFEN [Concomitant]
     Indication: BACK PAIN
     Dosage: DOSE UNKNOWN, AS REQUIRED
     Route: 062
     Dates: start: 20090522
  5. FLUTIDE [Concomitant]
     Indication: ASTHMA
     Dosage: NUMBER OF SEPARATE DOSAGES UNKNOWN
     Route: 055
     Dates: end: 20090812
  6. FLOMOX [Concomitant]
     Indication: PHARYNGITIS
     Dosage: DOSE UNKNOWN
     Route: 048
     Dates: start: 20090827, end: 20090901
  7. CALONAL [Concomitant]
     Indication: PHARYNGITIS
     Dosage: DOSE UNKNOWN, AS REQUIRED
     Route: 048
     Dates: start: 20090827, end: 20090901
  8. CALONAL [Concomitant]
     Indication: NASOPHARYNGITIS
     Dosage: DOSE UNKNOWN, AS REQUIRED
     Route: 048
     Dates: start: 20090827, end: 20090901
  9. CALONAL [Concomitant]
     Dosage: DOSE UNKNOWN
     Route: 048
     Dates: start: 20091224, end: 20091226
  10. CALONAL [Concomitant]
     Dosage: DOSE UNKNOWN
     Route: 048
     Dates: start: 20091224, end: 20091226
  11. SP [Concomitant]
     Indication: PHARYNGITIS
     Dosage: DOSE UNKNOWN, AS REQUIRED
     Route: 048
     Dates: start: 20090827, end: 20090901
  12. SOLANTAL [Concomitant]
     Indication: PHARYNGITIS
     Dosage: DOSE UNKNOWN
     Route: 048
     Dates: start: 20091014, end: 20091022
  13. DASEN [Concomitant]
     Indication: PHARYNGITIS
     Dosage: DOSE UNKNOWN
     Route: 048
     Dates: start: 20091014, end: 20091022
  14. SELBEX [Concomitant]
     Indication: GASTRITIS PROPHYLAXIS
     Dosage: DOSE UNKNOWN
     Route: 048
     Dates: start: 20091014, end: 20091022
  15. CLARITH [Concomitant]
     Indication: NASOPHARYNGITIS
     Dosage: DOSE UNKNOWN
     Route: 048
     Dates: start: 20091224, end: 20091226
  16. TRANEXAMIC ACID [Concomitant]
     Indication: NASOPHARYNGITIS
     Dosage: DOSE UNKNOWN
     Route: 048
     Dates: start: 20091224, end: 20091226
  17. DEXTROMETHORPHAN HYDROBROMIDE [Concomitant]
     Indication: NASOPHARYNGITIS
     Dosage: DOSE UNKNOWN
     Route: 048
     Dates: start: 20091224, end: 20091226

REACTIONS (1)
  - PYREXIA [None]
